FAERS Safety Report 10151913 (Version 3)
Quarter: 2015Q2

REPORT INFORMATION
  Report Type: Spontaneous
  Country: US (occurrence: None)
  Receive Date: 20140501
  Receipt Date: 20150430
  Transmission Date: 20150821
  Serious: No
  Sender: FDA-Public Use
  Company Number: 1713747-2014-99954

PATIENT
  Age: 19 Year
  Sex: Male
  Weight: 53 kg

DRUGS (3)
  1. DELFLEX [Suspect]
     Active Substance: CALCIUM CHLORIDE\DEXTROSE MONOHYDRATE\MAGNESIUM CHLORIDE\SODIUM CHLORIDE\SODIUM LACTATE
     Indication: PERITONEAL DIALYSIS
     Dosage: DAILY/IP
     Route: 033
  2. LIBERTY CYCLER SET [Concomitant]
     Active Substance: DEVICE
  3. LIBERTY CYCLER [Concomitant]
     Active Substance: DEVICE

REACTIONS (2)
  - Peritonitis bacterial [None]
  - Medical device complication [None]

NARRATIVE: CASE EVENT DATE: 20140401
